FAERS Safety Report 24782078 (Version 1)
Quarter: 2024Q4

REPORT INFORMATION
  Report Type: Spontaneous
  Country: US (occurrence: None)
  Receive Date: 20241226
  Receipt Date: 20241226
  Transmission Date: 20250115
  Serious: Yes (Hospitalization, Other)
  Sender: Public
  Company Number: None

PATIENT
  Age: 59 Year
  Sex: Female
  Weight: 108 kg

DRUGS (1)
  1. DUPIXENT [Suspect]
     Active Substance: DUPILUMAB
     Indication: Asthma
     Dosage: OTHER FREQUENCY : EVERY 2 WEEKS;?
     Route: 058
     Dates: start: 20241120, end: 20241224

REACTIONS (6)
  - Retinal detachment [None]
  - Visual impairment [None]
  - Vitreous floaters [None]
  - Vision blurred [None]
  - Blindness [None]
  - Therapy cessation [None]

NARRATIVE: CASE EVENT DATE: 20241224
